FAERS Safety Report 6387149-1 (Version None)
Quarter: 2009Q4

REPORT INFORMATION
  Report Type: 
  Country: None (occurrence: None)
  Receive Date: 20091002
  Receipt Date: 20090924
  Transmission Date: 20100525
  Serious: Yes (Other)
  Sender: FDA-Public Use
  Company Number: PHHY2009JP41631

PATIENT
  Sex: Male

DRUGS (4)
  1. DIOVAN [Suspect]
     Dosage: 80 MG, QD
     Route: 048
     Dates: start: 20080326, end: 20080513
  2. ARICEPT [Concomitant]
     Dosage: 5 MG, UNK
     Route: 048
     Dates: start: 20080408, end: 20080609
  3. ASPIRIN [Concomitant]
     Dosage: 100 MG, UNK
     Route: 048
     Dates: start: 20080513
  4. PLETAL [Concomitant]
     Dosage: 200 MG, UNK
     Route: 048
     Dates: start: 20070104

REACTIONS (2)
  - HYPOTENSION [None]
  - PETIT MAL EPILEPSY [None]
